FAERS Safety Report 14247761 (Version 1)
Quarter: 2017Q4

REPORT INFORMATION
  Report Type: Spontaneous
  Country: US (occurrence: US)
  Receive Date: 20171204
  Receipt Date: 20171204
  Transmission Date: 20180321
  Serious: No
  Sender: FDA-Public Use
  Company Number: US-SHIRE-US201729498

PATIENT
  Weight: 65.31 kg

DRUGS (6)
  1. CUVITRU [Suspect]
     Active Substance: HUMAN IMMUNOGLOBULIN G
     Indication: PRIMARY IMMUNODEFICIENCY SYNDROME
     Dosage: UNK
     Route: 065
     Dates: start: 20171110
  2. CUVITRU [Suspect]
     Active Substance: HUMAN IMMUNOGLOBULIN G
     Dosage: UNK
  3. HIZENTRA [Concomitant]
     Active Substance: HUMAN IMMUNOGLOBULIN G
     Indication: PRODUCT USED FOR UNKNOWN INDICATION
  4. VITAMINS                           /00067501/ [Concomitant]
     Active Substance: VITAMINS
     Indication: DRY EYE
  5. OMEGA                              /00661201/ [Concomitant]
     Indication: DRY EYE
  6. CALCIUM [Concomitant]
     Active Substance: CALCIUM
     Indication: DRY EYE

REACTIONS (4)
  - Infusion site erythema [Unknown]
  - Infusion site warmth [Unknown]
  - Infusion site swelling [Unknown]
  - Pain [Unknown]
